FAERS Safety Report 17868071 (Version 2)
Quarter: 2020Q2

REPORT INFORMATION
  Report Type: Report from Study
  Country: US (occurrence: US)
  Receive Date: 20200605
  Receipt Date: 20200611
  Transmission Date: 20200714
  Serious: Yes (Death, Other)
  Sender: FDA-Public Use
  Company Number: US-ROCHE-2613670

PATIENT
  Age: 34 Year
  Sex: Male
  Weight: 130 kg

DRUGS (43)
  1. DIPHENHYDRAMINE. [Concomitant]
     Active Substance: DIPHENHYDRAMINE
     Indication: PRURITUS
     Route: 065
     Dates: start: 20200519
  2. HEPARIN [Concomitant]
     Active Substance: HEPARIN SODIUM
     Dosage: DOSE: 12 OTHER, ANTI-COAGULATION
     Route: 065
     Dates: start: 20200521
  3. HEPARIN [Concomitant]
     Active Substance: HEPARIN SODIUM
     Dosage: ANTI-COAGULATION, DOSE: 20000 UNIT
     Route: 065
     Dates: start: 20200521, end: 20200521
  4. KETAMINE [Concomitant]
     Active Substance: KETAMINE
     Indication: SEDATION
     Dosage: DOSE: 20 OTHER
     Route: 065
     Dates: start: 20200518
  5. MAGNESIUM SULFATE. [Concomitant]
     Active Substance: MAGNESIUM SULFATE
     Dosage: RENAL REPLACEMENT THERAPY
     Route: 065
     Dates: start: 20200521
  6. ACETAMINOPHEN. [Concomitant]
     Active Substance: ACETAMINOPHEN
     Route: 065
     Dates: start: 20200518, end: 20200521
  7. CALCIUM GLUCONATE. [Concomitant]
     Active Substance: CALCIUM GLUCONATE
     Route: 065
     Dates: start: 20200522
  8. CISATRACURIUM. [Concomitant]
     Active Substance: CISATRACURIUM
     Indication: PARALYSIS
     Dosage: DOSE: 5 OTHER
     Route: 065
     Dates: start: 20200518
  9. FUROSEMIDE. [Concomitant]
     Active Substance: FUROSEMIDE
     Route: 065
     Dates: start: 20200516, end: 20200516
  10. MIDAZOLAM. [Concomitant]
     Active Substance: MIDAZOLAM
     Route: 065
     Dates: start: 20200522, end: 20200523
  11. POTASSIUM CHLORIDE. [Concomitant]
     Active Substance: POTASSIUM CHLORIDE
     Indication: HYPOKALAEMIA
     Dosage: DOSE: 80 OTHER
     Route: 065
     Dates: start: 20200518
  12. ACETAMINOPHEN. [Concomitant]
     Active Substance: ACETAMINOPHEN
     Route: 065
     Dates: start: 20200521, end: 20200525
  13. FUROSEMIDE. [Concomitant]
     Active Substance: FUROSEMIDE
     Route: 065
     Dates: start: 20200521, end: 20200521
  14. FUROSEMIDE. [Concomitant]
     Active Substance: FUROSEMIDE
     Route: 065
     Dates: start: 20200520, end: 20200520
  15. VANCOMYCIN [Concomitant]
     Active Substance: VANCOMYCIN
     Dosage: BACTERIAL INFECTION PROPHYLAXIS
     Route: 065
     Dates: start: 20200517, end: 20200520
  16. TOCILIZUMAB. [Suspect]
     Active Substance: TOCILIZUMAB
     Indication: COVID-19 PNEUMONIA
     Dosage: ON 19/MAY/2020, AT 14:41 HOURS; RECENT DOSE OF TOCILIZUMAB PRIOR TO (ADVERSE EVENT) AE/SAE (SERIOUS
     Route: 042
     Dates: start: 20200518
  17. ACETAMINOPHEN. [Concomitant]
     Active Substance: ACETAMINOPHEN
     Dosage: ANALGESIA
     Route: 065
     Dates: start: 20200517, end: 20200517
  18. AZTREONAM. [Concomitant]
     Active Substance: AZTREONAM
     Dosage: PSEUDOMONAS PROPHYLAXIS
     Route: 065
     Dates: start: 20200522
  19. INSULIN, REGULAR [Concomitant]
     Active Substance: INSULIN NOS
     Indication: HYPERGLYCAEMIA
     Dosage: DOSE: 6 OTHER
     Route: 065
     Dates: start: 20200521, end: 20200526
  20. VANCOMYCIN [Concomitant]
     Active Substance: VANCOMYCIN
     Dosage: BACTERIAL INFECTION PROPHYLAXIS
     Route: 065
     Dates: start: 20200517, end: 20200517
  21. ACETAMINOPHEN. [Concomitant]
     Active Substance: ACETAMINOPHEN
     Route: 065
     Dates: start: 20200516, end: 20200518
  22. EPINEPHRINE. [Concomitant]
     Active Substance: EPINEPHRINE
     Dosage: HEMODYNAMIC SUPPORT, DOSE: 1.4 OTHER
     Route: 065
     Dates: start: 20200521
  23. FLUDROCORTISONE [Concomitant]
     Active Substance: FLUDROCORTISONE
     Dosage: MINERALOCORTICOID REPLACEMENT
     Route: 065
     Dates: start: 20200521
  24. MIDAZOLAM. [Concomitant]
     Active Substance: MIDAZOLAM
     Dosage: DOSE: 4 OTHER
     Route: 065
     Dates: start: 20200524
  25. NOREPINEPHRINE. [Concomitant]
     Active Substance: NOREPINEPHRINE
     Dosage: CARDIOPULMONARY SUPPORT, DOSE: 1 OTHER
     Route: 065
     Dates: start: 20200517, end: 20200525
  26. CALCIUM GLUCONATE. [Concomitant]
     Active Substance: CALCIUM GLUCONATE
     Route: 065
     Dates: start: 20200525, end: 20200525
  27. DEXMEDETOMIDINE. [Concomitant]
     Active Substance: DEXMEDETOMIDINE
     Indication: SEDATION
     Dosage: DOSE: 1.4 OTHER
     Route: 065
     Dates: start: 20200516
  28. FENTANYL. [Concomitant]
     Active Substance: FENTANYL
     Dosage: ANALGESIA, DOSE: 30 OTHER
     Route: 065
     Dates: start: 20200517
  29. FENTANYL. [Concomitant]
     Active Substance: FENTANYL
     Dosage: ANALGESIA
     Route: 065
     Dates: start: 20200524, end: 20200524
  30. FUROSEMIDE. [Concomitant]
     Active Substance: FUROSEMIDE
     Indication: POLYURIA
     Dosage: DOSE: 7.5 OTHER
     Route: 065
     Dates: start: 20200521, end: 20200528
  31. FUROSEMIDE. [Concomitant]
     Active Substance: FUROSEMIDE
     Route: 065
     Dates: start: 20200521, end: 20200523
  32. MIDAZOLAM. [Concomitant]
     Active Substance: MIDAZOLAM
     Indication: SEDATION
     Route: 065
     Dates: start: 20200522
  33. MIDAZOLAM. [Concomitant]
     Active Substance: MIDAZOLAM
     Route: 065
     Dates: start: 20200524, end: 20200524
  34. NITRIC OXIDE. [Concomitant]
     Active Substance: NITRIC OXIDE
     Dosage: DOSE: 30 INHALATION, CARDIOPULMONARY SUPPORT
     Route: 065
     Dates: start: 20200521
  35. VANCOMYCIN [Concomitant]
     Active Substance: VANCOMYCIN
     Dosage: BACTERIAL INFECTION PROPHYLAXIS
     Route: 065
     Dates: start: 20200521
  36. FUROSEMIDE. [Concomitant]
     Active Substance: FUROSEMIDE
     Route: 065
     Dates: start: 20200522, end: 20200522
  37. PANTOPRAZOLE [Concomitant]
     Active Substance: PANTOPRAZOLE
     Dosage: STRESS ULCER PROPHYLAXIS
     Route: 065
     Dates: start: 20200522
  38. QUETIAPINE. [Concomitant]
     Active Substance: QUETIAPINE
     Indication: AGITATION
     Route: 065
     Dates: start: 20200522
  39. CALCIUM GLUCONATE. [Concomitant]
     Active Substance: CALCIUM GLUCONATE
     Indication: HYPOCALCAEMIA
     Route: 065
     Dates: start: 20200522
  40. FLUCONAZOLE. [Concomitant]
     Active Substance: FLUCONAZOLE
     Dosage: FUNGAL INFECTION PROPHYLAXIS
     Route: 065
     Dates: start: 20200521
  41. INSULIN ASPART [Concomitant]
     Active Substance: INSULIN ASPART
     Indication: HYPERGLYCAEMIA
     Dosage: DOSE: 1 UNIT
     Route: 065
     Dates: start: 20200527, end: 20200527
  42. PROPOFOL. [Concomitant]
     Active Substance: PROPOFOL
     Indication: SEDATION
     Dosage: DOSE: 50 OTHER
     Route: 065
     Dates: start: 20200517
  43. VASOPRESSIN. [Concomitant]
     Active Substance: VASOPRESSIN
     Dosage: HEMODYNAMIC SUPPORT, DOSE: 0.08 OTHER
     Route: 065
     Dates: start: 20200521

REACTIONS (2)
  - COVID-19 pneumonia [Fatal]
  - Platelet count decreased [Not Recovered/Not Resolved]

NARRATIVE: CASE EVENT DATE: 20200525
